FAERS Safety Report 6576446-2 (Version None)
Quarter: 2010Q1

REPORT INFORMATION
  Report Type: 
  Country: None (occurrence: None)
  Receive Date: 20100210
  Receipt Date: 20100202
  Transmission Date: 20100710
  Serious: Yes (Other)
  Sender: FDA-Public Use
  Company Number: PHHY2010JP04705

PATIENT
  Age: 40 Year
  Sex: Female

DRUGS (3)
  1. TEGRETOL [Suspect]
     Indication: EPILEPSY
     Dosage: 500 MG, UNK
     Route: 048
  2. HYSERENIN [Suspect]
     Indication: EPILEPSY
     Dosage: 850 MG, DAILY
     Route: 048
  3. PHENOBARBITAL TAB [Concomitant]
     Indication: EPILEPSY
     Dosage: 70 MG, UNK
     Route: 048

REACTIONS (2)
  - BLOOD COPPER DECREASED [None]
  - FANCONI SYNDROME [None]
